FAERS Safety Report 17374374 (Version 1)
Quarter: 2020Q1

REPORT INFORMATION
  Report Type: Spontaneous
  Country: US (occurrence: US)
  Receive Date: 20200206
  Receipt Date: 20200206
  Transmission Date: 20200409
  Serious: No
  Sender: FDA-Public Use
  Company Number: US-GLENMARK PHARMACEUTICALS-2019GMK044656

PATIENT

DRUGS (1)
  1. ZOLMITRIPTAN ORALLY DISINTEGRATING [Suspect]
     Active Substance: ZOLMITRIPTAN
     Indication: MIGRAINE
     Dosage: UNK, PRN; 2 TO 3 YEARS AGO
     Route: 048

REACTIONS (5)
  - Wrong product administered [Unknown]
  - Product packaging confusion [Unknown]
  - Product packaging issue [Unknown]
  - Product dispensing error [Unknown]
  - No adverse event [Unknown]
